FAERS Safety Report 8597691-0 (Version None)
Quarter: 2012Q3

REPORT INFORMATION
  Report Type: 
  Country: None (occurrence: None)
  Receive Date: 20120816
  Receipt Date: 20120812
  Transmission Date: 20120928
  Serious: Yes (Other)
  Sender: FDA-Public Use
  Company Number: US-PFIZER INC-2012196740

PATIENT
  Sex: Male

DRUGS (1)
  1. ZOLOFT [Suspect]
     Indication: POST-TRAUMATIC STRESS DISORDER
     Dosage: UNK, 1X/DAY
     Route: 048
     Dates: start: 20060301, end: 20120810

REACTIONS (8)
  - WITHDRAWAL SYNDROME [None]
  - PSYCHOTIC DISORDER [None]
  - DIZZINESS [None]
  - THINKING ABNORMAL [None]
  - ANXIETY [None]
  - IMPAIRED SELF-CARE [None]
  - TREMOR [None]
  - FEELING HOT [None]
